FAERS Safety Report 18338590 (Version 1)
Quarter: 2020Q4

REPORT INFORMATION
  Report Type: Spontaneous
  Country: US (occurrence: US)
  Receive Date: 20201002
  Receipt Date: 20201002
  Transmission Date: 20210113
  Serious: Yes (Death, Life-Threatening, Hospitalization, Other)
  Sender: FDA-Public Use
  Company Number: US-HIKMA PHARMACEUTICALS USA INC.-US-H14001-20-04519

PATIENT
  Age: 76 Year
  Sex: Male

DRUGS (7)
  1. LIDOCAINE. [Concomitant]
     Active Substance: LIDOCAINE
     Indication: VENTRICULAR TACHYCARDIA
     Dosage: UNKNOWN
     Route: 065
  2. AZATHIOPRINE. [Suspect]
     Active Substance: AZATHIOPRINE
     Indication: GIANT CELL MYOCARDITIS
     Route: 065
  3. CYCLOSPORINE. [Suspect]
     Active Substance: CYCLOSPORINE
     Indication: GIANT CELL MYOCARDITIS
     Route: 065
  4. METHYLPREDNISOLONE. [Suspect]
     Active Substance: METHYLPREDNISOLONE
     Indication: GIANT CELL MYOCARDITIS
     Route: 042
  5. CYCLOSPORINE. [Suspect]
     Active Substance: CYCLOSPORINE
     Route: 065
  6. MYCOPHENOLATE MOFETIL. [Suspect]
     Active Substance: MYCOPHENOLATE MOFETIL
     Indication: GIANT CELL MYOCARDITIS
     Route: 065
  7. MEXILETINE [Concomitant]
     Active Substance: MEXILETINE
     Indication: VENTRICULAR TACHYCARDIA
     Dosage: UNKNOWN
     Route: 065

REACTIONS (8)
  - Tracheitis [Fatal]
  - Cardiac failure acute [Fatal]
  - Condition aggravated [Fatal]
  - Septic shock [Fatal]
  - Staphylococcal bacteraemia [Fatal]
  - Cytomegalovirus infection reactivation [Fatal]
  - Colitis [Fatal]
  - Clostridium difficile infection [Fatal]
